FAERS Safety Report 4705435-5 (Version None)
Quarter: 2005Q3

REPORT INFORMATION
  Report Type: 
  Country: None (occurrence: None)
  Receive Date: 20050701
  Receipt Date: 20050623
  Transmission Date: 20060218
  Serious: Yes (Other)
  Sender: FDA-Public Use
  Company Number: GB-GLAXOSMITHKLINE-B0385629A

PATIENT
  Sex: Female

DRUGS (1)
  1. AMOXIL [Suspect]
     Route: 048
     Dates: start: 20050615, end: 20050620

REACTIONS (8)
  - DYSPNOEA [None]
  - HYPERSENSITIVITY [None]
  - OEDEMA PERIPHERAL [None]
  - PRURITUS [None]
  - RASH [None]
  - SWELLING [None]
  - SWELLING FACE [None]
  - TRACHEAL OEDEMA [None]
